FAERS Safety Report 7273773-0 (Version None)
Quarter: 2011Q1

REPORT INFORMATION
  Report Type: 
  Country: None (occurrence: None)
  Receive Date: 20110203
  Receipt Date: 20110127
  Transmission Date: 20110831
  Serious: Yes (Other)
  Sender: FDA-Public Use
  Company Number: DE-AMGEN-DEUSP2011005077

PATIENT
  Sex: Female

DRUGS (1)
  1. PROLIA [Suspect]
     Indication: PRODUCT USED FOR UNKNOWN INDICATION
     Dosage: UNK
     Dates: start: 20101202

REACTIONS (5)
  - HYPERHIDROSIS [None]
  - DIZZINESS [None]
  - UNEVALUABLE EVENT [None]
  - HYPOAESTHESIA [None]
  - FALL [None]
